FAERS Safety Report 5514610-1 (Version None)
Quarter: 2007Q4

REPORT INFORMATION
  Report Type: 
  Country: None (occurrence: None)
  Receive Date: 20071113
  Receipt Date: 20071030
  Transmission Date: 20080405
  Serious: Yes (Disabling)
  Sender: FDA-Public Use
  Company Number: CH-ELI_LILLY_AND_COMPANY-CH200710002545

PATIENT
  Age: 60 Year
  Sex: Male
  Weight: 107 kg

DRUGS (8)
  1. ALIMTA [Suspect]
     Dosage: 1000 MG, EVERY FOUR WEEKS
     Route: 042
     Dates: start: 20070615
  2. GEMZAR [Suspect]
     Dosage: UNK, UNKNOWN
     Route: 042
  3. CARBOPLATIN [Concomitant]
     Dosage: UNK, UNKNOWN
     Route: 065
  4. MEPHAMESON [Concomitant]
     Dosage: UNK, UNKNOWN
     Route: 042
     Dates: start: 20070615
  5. VITAMIN B-12 [Concomitant]
     Dosage: 1 MG, UNKNOWN
     Route: 030
     Dates: start: 20070613
  6. FOLIC ACID [Concomitant]
     Dosage: 1 MG, UNKNOWN
     Route: 048
     Dates: start: 20070613
  7. NAVOBAN [Concomitant]
     Dosage: 5 MG, UNKNOWN
     Route: 042
     Dates: start: 20070615
  8. THERAPEUTIC RADIOPHARMACEUTICALS [Concomitant]
     Dosage: UNK, UNKNOWN
     Dates: start: 20070626, end: 20070705

REACTIONS (1)
  - HERPES ZOSTER OPHTHALMIC [None]
